FAERS Safety Report 19687201 (Version 3)
Quarter: 2022Q4

REPORT INFORMATION
  Report Type: Spontaneous
  Country: US (occurrence: US)
  Receive Date: 20210811
  Receipt Date: 20221012
  Transmission Date: 20230112
  Serious: No
  Sender: FDA-Public Use
  Company Number: US-PFIZER INC-2021635923

PATIENT
  Age: 87 Year
  Sex: Female
  Weight: 51.71 kg

DRUGS (1)
  1. IBRANCE [Suspect]
     Active Substance: PALBOCICLIB
     Dosage: 125 MG
     Dates: start: 20220215

REACTIONS (1)
  - International normalised ratio increased [Unknown]
